FAERS Safety Report 6451852-5 (Version None)
Quarter: 2009Q4

REPORT INFORMATION
  Report Type: 
  Country: None (occurrence: None)
  Receive Date: 20091123
  Receipt Date: 20091110
  Transmission Date: 20100525
  Serious: Yes (Hospitalization, Other)
  Sender: FDA-Public Use
  Company Number: US-ELI_LILLY_AND_COMPANY-US200911005477

PATIENT
  Sex: Female

DRUGS (7)
  1. CYMBALTA [Suspect]
     Indication: PAIN
     Dosage: 30 MG, DAILY (1/D)
     Dates: start: 20090201, end: 20090101
  2. CYMBALTA [Suspect]
     Dosage: 60 MG, DAILY (1/D)
     Dates: start: 20090101
  3. LABETALOL HCL [Concomitant]
     Dosage: 100 MG, 2/D
  4. NORVASC [Concomitant]
     Dosage: 2.5 MG, DAILY (1/D)
  5. LISINOPRIL [Concomitant]
     Dosage: 40 MG, 2/D
  6. LIPITOR [Concomitant]
     Dosage: 10 MG, DAILY (1/D)
  7. CORTISONE [Concomitant]

REACTIONS (3)
  - FALL [None]
  - HIP FRACTURE [None]
  - OFF LABEL USE [None]
